FAERS Safety Report 17542066 (Version 2)
Quarter: 2020Q2

REPORT INFORMATION
  Report Type: Spontaneous
  Country: DE (occurrence: DE)
  Receive Date: 20200313
  Receipt Date: 20200421
  Transmission Date: 20200713
  Serious: Yes (Life-Threatening, Disabling, Other)
  Sender: FDA-Public Use
  Company Number: DE-JNJFOC-20200309291

PATIENT
  Age: 75 Year
  Sex: Male

DRUGS (3)
  1. BISOPROLOL [Concomitant]
     Active Substance: BISOPROLOL
     Dosage: 5 PER DAY
  2. RIVAROXABAN [Suspect]
     Active Substance: RIVAROXABAN
     Indication: ATRIAL FIBRILLATION
     Dosage: 20 MG, QD
     Route: 048
  3. AMIODARONE [Concomitant]
     Active Substance: AMIODARONE
     Dosage: 200 PER DAY

REACTIONS (5)
  - Embolic stroke [Unknown]
  - Cardioversion [Unknown]
  - Carotid artery stenosis [Unknown]
  - Cerebral infarction [Unknown]
  - Echocardiogram [Unknown]

NARRATIVE: CASE EVENT DATE: 202002
